FAERS Safety Report 20481879 (Version 1)
Quarter: 2022Q1

REPORT INFORMATION
  Report Type: Spontaneous
  Country: NL (occurrence: NL)
  Receive Date: 20220216
  Receipt Date: 20220216
  Transmission Date: 20220423
  Serious: Yes (Hospitalization, Other)
  Sender: FDA-Public Use
  Company Number: NL-BoehringerIngelheim-2022-BI-154212

PATIENT
  Age: 52 Year
  Sex: Male

DRUGS (1)
  1. JARDIANCE [Suspect]
     Active Substance: EMPAGLIFLOZIN
     Indication: Product used for unknown indication

REACTIONS (4)
  - Feeling abnormal [Unknown]
  - Dyspnoea [Unknown]
  - Chromaturia [Unknown]
  - Ketoacidosis [Unknown]

NARRATIVE: CASE EVENT DATE: 20220215
